FAERS Safety Report 5052501-3 (Version None)
Quarter: 2006Q3

REPORT INFORMATION
  Report Type: 
  Country: None (occurrence: None)
  Receive Date: 20060717
  Receipt Date: 20060706
  Transmission Date: 20061208
  Serious: Yes (Other)
  Sender: FDA-Public Use
  Company Number: CA-JNJFOC-20060503658

PATIENT
  Sex: Female

DRUGS (4)
  1. REMICADE [Suspect]
     Route: 042
  2. REMICADE [Suspect]
     Route: 042
  3. REMICADE [Suspect]
     Dosage: DOSE 200 MG / TWO INFUSIONS GIVEN ON UNKNOWN DATES
     Route: 042
  4. REMICADE [Suspect]
     Indication: WEGENER'S GRANULOMATOSIS
     Route: 042

REACTIONS (3)
  - ABSCESS [None]
  - IMPLANT SITE INFLAMMATION [None]
  - WEGENER'S GRANULOMATOSIS [None]
